FAERS Safety Report 21371451 (Version 1)
Quarter: 2022Q3

REPORT INFORMATION
  Report Type: Spontaneous
  Country: US (occurrence: None)
  Receive Date: 20220922
  Receipt Date: 20220922
  Transmission Date: 20221026
  Serious: Yes (Death)
  Sender: FDA-Public Use
  Company Number: None

PATIENT
  Age: 62 Year
  Sex: Male

DRUGS (2)
  1. CAPECITABINE [Suspect]
     Active Substance: CAPECITABINE
     Indication: Neuroendocrine tumour
     Dosage: OTHER FREQUENCY : OTHER;?
     Route: 048
     Dates: start: 202208, end: 202209
  2. CAPECITABINE [Suspect]
     Active Substance: CAPECITABINE
     Indication: Neoplasm malignant

REACTIONS (2)
  - Neoplasm malignant [None]
  - Disease complication [None]

NARRATIVE: CASE EVENT DATE: 20220913
